FAERS Safety Report 5865895-3 (Version None)
Quarter: 2008Q3

REPORT INFORMATION
  Report Type: 
  Country: None (occurrence: None)
  Receive Date: 20080829
  Receipt Date: 20080822
  Transmission Date: 20090109
  Serious: Yes (Death, Other)
  Sender: FDA-Public Use
  Company Number: US-PFIZER INC-2007082695

PATIENT
  Sex: Female
  Weight: 63.636 kg

DRUGS (1)
  1. CHANTIX [Suspect]
     Indication: SMOKING CESSATION THERAPY

REACTIONS (9)
  - AGGRESSION [None]
  - CARBON MONOXIDE POISONING [None]
  - COMPLETED SUICIDE [None]
  - DEPRESSION [None]
  - IRRITABILITY [None]
  - MEDICATION ERROR [None]
  - MENTAL DISORDER [None]
  - MOOD ALTERED [None]
  - NO ADVERSE EVENT [None]
